FAERS Safety Report 20501922 (Version 1)
Quarter: 2022Q1

REPORT INFORMATION
  Report Type: Spontaneous
  Country: US (occurrence: None)
  Receive Date: 20220219
  Receipt Date: 20220219
  Transmission Date: 20220423
  Serious: Yes (Other)
  Sender: FDA-Public Use
  Company Number: None

PATIENT
  Age: 60 Year
  Sex: Female
  Weight: 66.15 kg

DRUGS (1)
  1. YUVAFEM [Suspect]
     Active Substance: ESTRADIOL HEMIHYDRATE
     Indication: Vulvovaginal dryness
     Dosage: FREQUENCY : TWICE A WEEK;?
     Route: 067
     Dates: start: 20220206, end: 20220218

REACTIONS (15)
  - Nausea [None]
  - Headache [None]
  - Decreased appetite [None]
  - Anxiety [None]
  - Adjustment disorder with depressed mood [None]
  - Disorientation [None]
  - Constipation [None]
  - Faeces soft [None]
  - Faeces pale [None]
  - Faeces discoloured [None]
  - Chest pain [None]
  - Insomnia [None]
  - Insomnia [None]
  - Agitation [None]
  - Therapy cessation [None]

NARRATIVE: CASE EVENT DATE: 20220217
